FAERS Safety Report 7647792-6 (Version None)
Quarter: 2011Q3

REPORT INFORMATION
  Report Type: 
  Country: None (occurrence: None)
  Receive Date: 20110801
  Receipt Date: 20110725
  Transmission Date: 20111222
  Serious: Yes (Other)
  Sender: FDA-Public Use
  Company Number: DE-BRISTOL-MYERS SQUIBB COMPANY-15923527

PATIENT
  Age: 66 Year
  Sex: Male

DRUGS (3)
  1. TRUVADA [Suspect]
     Indication: HIV INFECTION
     Route: 048
  2. ONGLYZA [Suspect]
     Dosage: STARTED 3MONTHS AGO.
     Route: 048
     Dates: start: 20110101
  3. VIRAMUNE [Suspect]
     Indication: HIV INFECTION
     Route: 048

REACTIONS (1)
  - VIRAL LOAD INCREASED [None]
